FAERS Safety Report 7007764-1 (Version None)
Quarter: 2010Q3

REPORT INFORMATION
  Report Type: 
  Country: None (occurrence: None)
  Receive Date: 20100920
  Receipt Date: 20100818
  Transmission Date: 20110219
  Serious: Yes (Hospitalization, Other)
  Sender: FDA-Public Use
  Company Number: ACO_01774_2010

PATIENT
  Sex: Female

DRUGS (15)
  1. AMPYRA [Suspect]
     Indication: PRODUCT USED FOR UNKNOWN INDICATION
     Dosage: 10 MG BID 12 HOURS APART ORAL
     Route: 048
     Dates: start: 20100518, end: 20100814
  2. OXYBUTYNIN [Concomitant]
  3. TRAMADOL HCL [Concomitant]
  4. ATENOLOL [Concomitant]
  5. MIRTAZAPINE [Concomitant]
  6. TYSABRI [Concomitant]
  7. PROVIGIL [Concomitant]
  8. MAXALT-MLT [Concomitant]
  9. WELLBUTRIN [Concomitant]
  10. BACLOFEN [Concomitant]
  11. TYLENOL [Concomitant]
  12. AMBIEN [Concomitant]
  13. MULTI-VITAMIN [Concomitant]
  14. VITAMIN D [Concomitant]
  15. CALCIUM [Concomitant]

REACTIONS (9)
  - CONFUSIONAL STATE [None]
  - CONVULSION [None]
  - DRUG EFFECT DECREASED [None]
  - FALL [None]
  - FEELING HOT [None]
  - LOSS OF CONSCIOUSNESS [None]
  - OPISTHOTONUS [None]
  - POSTICTAL STATE [None]
  - STARING [None]
